FAERS Safety Report 7775510-X (Version None)
Quarter: 2011Q3

REPORT INFORMATION
  Report Type: 
  Country: None (occurrence: None)
  Receive Date: 20110921
  Receipt Date: 20110913
  Transmission Date: 20111222
  Serious: Yes (Hospitalization, Disabling, Other)
  Sender: FDA-Public Use
  Company Number: 2011SP025677

PATIENT
  Age: 26 Year
  Sex: Female
  Weight: 72.5755 kg

DRUGS (12)
  1. NUVARING [Suspect]
  2. NUVARING [Suspect]
  3. MULTI-VITAMIN [Concomitant]
  4. NUVARING [Suspect]
     Indication: CONTRACEPTION
     Dosage: VAG
     Route: 067
     Dates: start: 20080101, end: 20081031
  5. NUVARING [Suspect]
     Indication: MENSTRUATION IRREGULAR
     Dosage: VAG
     Route: 067
     Dates: start: 20080101, end: 20081031
  6. NUVARING [Suspect]
     Indication: CONTRACEPTION
     Dosage: VAG
     Route: 067
     Dates: start: 20081101, end: 20090609
  7. NUVARING [Suspect]
     Indication: MENSTRUATION IRREGULAR
     Dosage: VAG
     Route: 067
     Dates: start: 20081101, end: 20090609
  8. NUVARING [Suspect]
  9. VICOPROFEN [Suspect]
     Indication: CHEST PAIN
     Dosage: 1 DF; ONCE
     Dates: start: 20090608, end: 20090608
  10. NUVARING [Suspect]
  11. NUVARING [Suspect]
  12. NUVARING [Suspect]

REACTIONS (11)
  - ANAEMIA [None]
  - PNEUMONIA [None]
  - THROMBOSIS [None]
  - UPPER RESPIRATORY TRACT INFECTION [None]
  - PULMONARY EMBOLISM [None]
  - INFLUENZA LIKE ILLNESS [None]
  - OVARIAN CYST [None]
  - MULTIPLE INJURIES [None]
  - HYPONATRAEMIA [None]
  - PLEURISY [None]
  - HYPERCOAGULATION [None]
